FAERS Safety Report 16015873 (Version 2)
Quarter: 2019Q2

REPORT INFORMATION
  Report Type: Spontaneous
  Country: US (occurrence: US)
  Receive Date: 20190228
  Receipt Date: 20190408
  Transmission Date: 20190711
  Serious: Yes (Hospitalization, Other)
  Sender: FDA-Public Use
  Company Number: US-TOLMAR, INC.-2019US001915

PATIENT

DRUGS (3)
  1. ELIGARD [Suspect]
     Active Substance: LEUPROLIDE ACETATE
     Indication: PROSTATIC SPECIFIC ANTIGEN ABNORMAL
     Dosage: 45 MG, 6 MONTH DOSE
     Route: 058
     Dates: start: 20181001
  2. LATANOPROST. [Concomitant]
     Active Substance: LATANOPROST
     Route: 047
  3. DORZOLAMIDE [Concomitant]
     Active Substance: DORZOLAMIDE
     Route: 065

REACTIONS (6)
  - Haematospermia [Unknown]
  - Drug ineffective [Unknown]
  - Arterial thrombosis [Unknown]
  - Prostatic specific antigen increased [Unknown]
  - Chest pain [Unknown]
  - Erectile dysfunction [Unknown]
